FAERS Safety Report 10003888 (Version 1)
Quarter: 2014Q1

REPORT INFORMATION
  Report Type: Spontaneous
  Country: US (occurrence: US)
  Receive Date: 20140312
  Receipt Date: 20140312
  Transmission Date: 20141002
  Serious: No
  Sender: FDA-Public Use
  Company Number: US-ABBVIE-14P-163-1202753-00

PATIENT
  Age: 47 Year
  Sex: Female
  Weight: 109.87 kg

DRUGS (1)
  1. DEPAKOTE [Suspect]
     Indication: MIGRAINE
     Dates: start: 20131220, end: 201402

REACTIONS (2)
  - Cautery to nose [Unknown]
  - Epistaxis [Recovered/Resolved]
